FAERS Safety Report 20535127 (Version 2)
Quarter: 2022Q1

REPORT INFORMATION
  Report Type: Spontaneous
  Country: GB (occurrence: GB)
  Receive Date: 20220302
  Receipt Date: 20220315
  Transmission Date: 20220423
  Serious: Yes (Hospitalization)
  Sender: FDA-Public Use
  Company Number: GB-ALNYLAM PHARMACEUTICALS, INC.-ALN-2022-000748

PATIENT

DRUGS (1)
  1. ONPATTRO [Suspect]
     Active Substance: PATISIRAN SODIUM
     Indication: Amyloidosis
     Dosage: 19 MILLIGRAM, Q3W
     Route: 042
     Dates: start: 20211215

REACTIONS (8)
  - Localised infection [Unknown]
  - Malaise [Unknown]
  - Body temperature increased [Unknown]
  - Infusion site extravasation [Unknown]
  - Burning sensation [Unknown]
  - Erythema [Unknown]
  - Pain [Unknown]
  - Product administration interrupted [Unknown]
